FAERS Safety Report 14351978 (Version 1)
Quarter: 2020Q3

REPORT INFORMATION
  Report Type: Report from Study
  Country: US (occurrence: US)
  Receive Date: 20180104
  Receipt Date: 20180104
  Transmission Date: 20201104
  Serious: Yes (Other)
  Sender: FDA-Public Use
  Company Number: US-TEVA-2018-US-843536

PATIENT
  Age: 66 Year
  Sex: Female

DRUGS (4)
  1. ZOSTAVAX [Suspect]
     Active Substance: VARICELLA-ZOSTER VIRUS STRAIN OKA/MERCK LIVE ANTIGEN
     Indication: HERPES ZOSTER
  2. METHYLPREDNISOLONE. [Suspect]
     Active Substance: METHYLPREDNISOLONE
     Indication: IMMUNOSUPPRESSION
     Dosage: HIGH DOSE
     Route: 042
  3. FINGOLIMOD. [Suspect]
     Active Substance: FINGOLIMOD
     Indication: IMMUNOSUPPRESSION
     Route: 065
  4. ZOSTAVAX [Suspect]
     Active Substance: VARICELLA-ZOSTER VIRUS STRAIN OKA/MERCK LIVE ANTIGEN
     Indication: HERPES ZOSTER

REACTIONS (2)
  - Herpes zoster meningoencephalitis [Recovered/Resolved]
  - Vaccination failure [Unknown]
